FAERS Safety Report 16765052 (Version 4)
Quarter: 2020Q1

REPORT INFORMATION
  Report Type: Spontaneous
  Country: JP (occurrence: JP)
  Receive Date: 20190903
  Receipt Date: 20200114
  Transmission Date: 20200409
  Serious: Yes (Hospitalization, Other)
  Sender: FDA-Public Use
  Company Number: JP-BRISTOL-MYERS SQUIBB COMPANY-BMS-2019-054510

PATIENT
  Age: 55 Year
  Sex: Male
  Weight: 124 kg

DRUGS (2)
  1. OPDIVO [Suspect]
     Active Substance: NIVOLUMAB
     Indication: METASTATIC RENAL CELL CARCINOMA
     Dosage: 240 MILLIGRAM ON 08-MAR-2019, 29-MAR-2019 AND 26-APR-2019
     Route: 041
     Dates: start: 20190308, end: 20190426
  2. YERVOY [Suspect]
     Active Substance: IPILIMUMAB
     Indication: METASTATIC RENAL CELL CARCINOMA
     Dosage: 100 MILLIGRAM ON 08-MAR-2019, 29-MAR-2019 AND 26-APR-2019
     Route: 041
     Dates: start: 20190308, end: 20190426

REACTIONS (6)
  - Secondary adrenocortical insufficiency [Not Recovered/Not Resolved]
  - Blood bilirubin increased [Unknown]
  - Cholangitis [Unknown]
  - Cardiac failure [Unknown]
  - Urinary tract infection [Unknown]
  - Prescribed underdose [Unknown]

NARRATIVE: CASE EVENT DATE: 20190514
